FAERS Safety Report 5579940-6 (Version None)
Quarter: 2008Q1

REPORT INFORMATION
  Report Type: 
  Country: None (occurrence: None)
  Receive Date: 20080103
  Receipt Date: 20071226
  Transmission Date: 20080703
  Serious: Yes (Hospitalization)
  Sender: FDA-Public Use
  Company Number: PHHO2007US16736

PATIENT
  Age: 32 Year
  Sex: Female

DRUGS (5)
  1. CERTICAN [Suspect]
     Indication: RENAL TRANSPLANT
     Dosage: 1.5 MG, Q12H
     Route: 048
  2. CERTICAN [Suspect]
     Dosage: 3.75 MG/DAILY
     Route: 048
  3. LISINOPRIL [Concomitant]
  4. LASIX [Concomitant]
  5. NEORAL [Suspect]
     Indication: RENAL TRANSPLANT
     Dosage: 50 MG, Q12H
     Route: 048

REACTIONS (11)
  - BLOOD CREATININE INCREASED [None]
  - CELLULITIS [None]
  - CELLULITIS STAPHYLOCOCCAL [None]
  - DEEP VEIN THROMBOSIS [None]
  - ERYTHEMA [None]
  - LYMPHOEDEMA [None]
  - OEDEMA PERIPHERAL [None]
  - PAIN [None]
  - PAIN IN EXTREMITY [None]
  - PYELOCALIECTASIS [None]
  - RENAL FAILURE ACUTE [None]
